FAERS Safety Report 9052879 (Version 3)
Quarter: 2013Q3

REPORT INFORMATION
  Report Type: Spontaneous
  Country: GR (occurrence: GR)
  Receive Date: 20130207
  Receipt Date: 20130924
  Transmission Date: 20140515
  Serious: Yes (Death, Hospitalization)
  Sender: FDA-Public Use
  Company Number: GR-B.I. PHARMACEUTICALS,INC./RIDGEFIELD-2013-BI-03013GB

PATIENT
  Age: 80 Year
  Sex: Female

DRUGS (4)
  1. PRADAXA [Suspect]
     Indication: ATRIAL FIBRILLATION
     Dosage: 220 MG
     Route: 048
     Dates: start: 201211, end: 20130117
  2. DIOVAN [Concomitant]
     Indication: HYPERTENSION
  3. LASIX [Concomitant]
     Indication: DIURETIC THERAPY
  4. LOPRESSOR [Concomitant]
     Indication: HYPERTENSION

REACTIONS (3)
  - Aortic thrombosis [Fatal]
  - Myocardial infarction [Recovered/Resolved]
  - Coronary artery thrombosis [Recovered/Resolved]
